FAERS Safety Report 4845569-8 (Version None)
Quarter: 2005Q4

REPORT INFORMATION
  Report Type: 
  Country: None (occurrence: None)
  Receive Date: 20051205
  Receipt Date: 20050325
  Transmission Date: 20060501
  Serious: Yes (Hospitalization, Disabling)
  Sender: FDA-Public Use
  Company Number: US-MERCK-0503USA05005

PATIENT
  Age: 61 Year
  Sex: Female
  Weight: 65 kg

DRUGS (2)
  1. VIOXX [Suspect]
     Indication: ARTHRITIS
     Route: 048
     Dates: start: 20010827, end: 20030324
  2. VIOXX [Suspect]
     Indication: PAIN
     Route: 048
     Dates: start: 20010827, end: 20030324

REACTIONS (3)
  - CARDIAC FAILURE CONGESTIVE [None]
  - HYPERTENSION [None]
  - RENAL FAILURE [None]
